FAERS Safety Report 4519886-5 (Version None)
Quarter: 2004Q4

REPORT INFORMATION
  Report Type: 
  Country: None (occurrence: None)
  Receive Date: 20041201
  Receipt Date: 20041201
  Transmission Date: 20050328
  Serious: No
  Sender: FDA-Public Use
  Company Number: None

PATIENT
  Age: 32 Year
  Sex: Female
  Weight: 61.2356 kg

DRUGS (1)
  1. TOPAMAX [Suspect]
     Indication: MIGRAINE
     Dosage: TWICE  DAILY  ORAL
     Route: 048
     Dates: start: 20041120, end: 20041128

REACTIONS (1)
  - ANGLE CLOSURE GLAUCOMA [None]
